FAERS Safety Report 6598836-4 (Version None)
Quarter: 2010Q1

REPORT INFORMATION
  Report Type: 
  Country: None (occurrence: None)
  Receive Date: 20100224
  Receipt Date: 20100215
  Transmission Date: 20100710
  Serious: Yes (Other)
  Sender: FDA-Public Use
  Company Number: US-NOVOPROD-291982

PATIENT
  Age: 82 Year
  Sex: Female
  Weight: 79.819 kg

DRUGS (10)
  1. NOVOLIN 70/30 [Suspect]
     Indication: TYPE 2 DIABETES MELLITUS
     Dosage: UNKNOWN
     Route: 058
  2. SPIRIVA [Concomitant]
     Indication: CHRONIC OBSTRUCTIVE PULMONARY DISEASE
     Dosage: 18 MG, BID
     Route: 055
  3. SPIRIVA [Concomitant]
     Indication: BRONCHIECTASIS
  4. AMIODARONE HCL [Concomitant]
     Dosage: 200 MG, QD
  5. ASPIRIN [Concomitant]
     Dosage: 81 MG, QD
     Route: 048
  6. BENAZEPRIL HYDROCHLORIDE [Concomitant]
     Dosage: 40 MG, QD
     Route: 048
  7. COUMADIN [Concomitant]
     Dosage: 1 MG, QD
     Route: 048
  8. TYLENOL (CAPLET) [Concomitant]
     Dosage: 650 MG, PRN
     Route: 048
  9. CRESTOR [Concomitant]
     Dosage: 20 MG, QD
     Route: 048
  10. PROVENTIL HFA                      /00139501/ [Concomitant]
     Dosage: 108 UG, QD

REACTIONS (1)
  - SPINAL COLUMN STENOSIS [None]
